FAERS Safety Report 7719286-0 (Version None)
Quarter: 2011Q3

REPORT INFORMATION
  Report Type: 
  Country: None (occurrence: None)
  Receive Date: 20110830
  Receipt Date: 20110822
  Transmission Date: 20111222
  Serious: Yes (Hospitalization, Other)
  Sender: FDA-Public Use
  Company Number: US-BAYER-2011-049652

PATIENT
  Sex: Female
  Weight: 88.435 kg

DRUGS (3)
  1. FORADIL [Concomitant]
     Indication: ASTHMA
     Dosage: UNK
     Dates: start: 20040101, end: 20070901
  2. COMBIVENT [Concomitant]
     Indication: ASTHMA
     Dosage: UNK
     Dates: start: 20040101
  3. YASMIN [Suspect]
     Indication: CONTRACEPTION
     Dosage: UNK
     Dates: start: 20040101, end: 20050101

REACTIONS (6)
  - CHOLECYSTITIS CHRONIC [None]
  - PSYCHIATRIC SYMPTOM [None]
  - CHOLELITHIASIS [None]
  - INJURY [None]
  - EMOTIONAL DISTRESS [None]
  - GALLBLADDER DISORDER [None]
